FAERS Safety Report 5449594-8 (Version None)
Quarter: 2007Q3

REPORT INFORMATION
  Report Type: 
  Country: None (occurrence: None)
  Receive Date: 20070910
  Receipt Date: 20070903
  Transmission Date: 20080115
  Serious: Yes (Hospitalization)
  Sender: FDA-Public Use
  Company Number: URSO-2007-146

PATIENT
  Age: 55 Year
  Sex: Female

DRUGS (7)
  1. URSO (URSODEOXYCHOLIC ACID) [Suspect]
     Indication: BILIARY CIRRHOSIS PRIMARY
     Dosage: 600 MG ORAL
     Route: 048
     Dates: start: 20020524
  2. CHONDRON (CHONDROITIN SULPHATE SODIUM) [Concomitant]
  3. TOKISHAKUYAKUSAN (TOKISHAKUYAKUSHAN) [Concomitant]
  4. TAURINE (AMINOETHYLSULFONIC ACID) [Concomitant]
  5. NIFLAN (PRANOPROFEN) [Concomitant]
  6. NEO-MEDROL (FRADIOMYCIN SULPHATE METHYLPREDNISOLONE) [Concomitant]
  7. (MAGNESIUM OXIDE) [Concomitant]

REACTIONS (1)
  - INTESTINAL OBSTRUCTION [None]
